FAERS Safety Report 10616868 (Version 3)
Quarter: 2015Q2

REPORT INFORMATION
  Report Type: Spontaneous
  Country: US (occurrence: US)
  Receive Date: 20141201
  Receipt Date: 20150505
  Transmission Date: 20150821
  Serious: Yes (Hospitalization)
  Sender: FDA-Public Use
  Company Number: US-PFIZER INC-2014302004

PATIENT
  Age: 67 Year
  Sex: Male

DRUGS (1)
  1. SUTENT [Suspect]
     Active Substance: SUNITINIB MALATE
     Indication: METASTATIC RENAL CELL CARCINOMA
     Dosage: 50 MG, 1X/DAY
     Dates: start: 201309

REACTIONS (4)
  - Arthropathy [Recovered/Resolved]
  - Disease progression [Unknown]
  - Metastatic renal cell carcinoma [Unknown]
  - Gallbladder disorder [Recovered/Resolved]
